FAERS Safety Report 18202108 (Version 5)
Quarter: 2020Q4

REPORT INFORMATION
  Report Type: Spontaneous
  Country: US (occurrence: US)
  Receive Date: 20200827
  Receipt Date: 20201231
  Transmission Date: 20210113
  Serious: No
  Sender: FDA-Public Use
  Company Number: US-PFIZER INC-2020332290

PATIENT
  Age: 55 Year
  Sex: Female

DRUGS (2)
  1. IBRANCE [Suspect]
     Active Substance: PALBOCICLIB
     Indication: BREAST CANCER FEMALE
     Dosage: 100 MG, CYCLIC (ONCE A DAY X 21 DAYS)
     Dates: start: 20200505, end: 2020
  2. IBRANCE [Suspect]
     Active Substance: PALBOCICLIB
     Dosage: 100 MG, CYCLIC (ONCE A DAY, FOR 21 DAYS)
     Dates: start: 20200721

REACTIONS (4)
  - Nasopharyngitis [Unknown]
  - Hot flush [Unknown]
  - Pain in extremity [Unknown]
  - Night sweats [Unknown]

NARRATIVE: CASE EVENT DATE: 2020
